FAERS Safety Report 8325904-9 (Version None)
Quarter: 2012Q2

REPORT INFORMATION
  Report Type: 
  Country: None (occurrence: None)
  Receive Date: 20120501
  Receipt Date: 20120420
  Transmission Date: 20120825
  Serious: No
  Sender: FDA-Public Use
  Company Number: US-BIOGENIDEC-2012BI013975

PATIENT
  Age: 34 Year
  Sex: Male

DRUGS (4)
  1. TYSABRI [Suspect]
     Route: 042
     Dates: start: 20120404
  2. AVONEX [Concomitant]
     Indication: MULTIPLE SCLEROSIS
     Route: 030
     Dates: start: 20030321
  3. TYSABRI [Suspect]
     Indication: MULTIPLE SCLEROSIS
     Route: 042
     Dates: start: 20080219, end: 20080716
  4. BENADRYL [Concomitant]
     Indication: PREMEDICATION
     Route: 042
     Dates: start: 20120420

REACTIONS (2)
  - VOMITING [None]
  - INFUSION RELATED REACTION [None]
